FAERS Safety Report 20552274 (Version 1)
Quarter: 2022Q1

REPORT INFORMATION
  Report Type: Spontaneous
  Country: IR (occurrence: IR)
  Receive Date: 20220304
  Receipt Date: 20220304
  Transmission Date: 20220423
  Serious: Yes (Other)
  Sender: FDA-Public Use
  Company Number: IR-SUN PHARMACEUTICAL INDUSTRIES LTD-2022R1-328095

PATIENT
  Age: 43 Year
  Sex: Male
  Weight: 85 kg

DRUGS (1)
  1. METHADONE [Suspect]
     Active Substance: METHADONE HYDROCHLORIDE
     Indication: Product used for unknown indication
     Dosage: UNK
     Route: 065

REACTIONS (8)
  - Hyperaesthesia [Unknown]
  - Blood testosterone decreased [Recovering/Resolving]
  - Libido decreased [Unknown]
  - Anorgasmia [Unknown]
  - Asthenia [Recovering/Resolving]
  - Disturbance in attention [Unknown]
  - Hot flush [Recovering/Resolving]
  - Irritability [Unknown]
